FAERS Safety Report 4627746-4 (Version None)
Quarter: 2005Q2

REPORT INFORMATION
  Report Type: 
  Country: None (occurrence: None)
  Receive Date: 20050401
  Receipt Date: 20030625
  Transmission Date: 20051028
  Serious: Yes (Hospitalization)
  Sender: FDA-Public Use
  Company Number: 5533

PATIENT
  Age: 75 Year
  Sex: Male

DRUGS (11)
  1. PAMIDRONATE DISODIUM [Suspect]
     Indication: HYPERCALCAEMIA
     Dosage: 60 MG Q3W/90 MG WEEKLY
     Route: 042
     Dates: start: 19991201, end: 20001001
  2. PAMIDRONATE DISODIUM [Suspect]
     Indication: HYPERCALCAEMIA
     Dosage: 60 MG Q3W/90 MG WEEKLY
     Route: 042
     Dates: start: 20001001, end: 20010201
  3. CALCITONIN [Concomitant]
  4. GLIQUIDONE [Concomitant]
  5. MOLSIDOMINE [Concomitant]
  6. DILTIAZEM [Concomitant]
  7. SIMVASTATIN [Concomitant]
  8. ACETYL SALICYLIC ACID USP BAT [Concomitant]
  9. FOLIC ACID [Concomitant]
  10. ACENOCOUMAROL [Concomitant]
  11. FUROSEMIDE [Concomitant]

REACTIONS (7)
  - ASTHENIA [None]
  - CARDIAC MURMUR [None]
  - FANCONI SYNDROME ACQUIRED [None]
  - FATIGUE [None]
  - HYPOREFLEXIA [None]
  - OEDEMA PERIPHERAL [None]
  - TUBULOINTERSTITIAL NEPHRITIS [None]
